FAERS Safety Report 15329092 (Version 1)
Quarter: 2018Q3

REPORT INFORMATION
  Report Type: Spontaneous
  Country: US (occurrence: US)
  Receive Date: 20180829
  Receipt Date: 20180829
  Transmission Date: 20181010
  Serious: No
  Sender: FDA-Public Use
  Company Number: US-STRIDES ARCOLAB LIMITED-2018SP006780

PATIENT

DRUGS (4)
  1. DUTASTERIDE. [Suspect]
     Active Substance: DUTASTERIDE
     Indication: PROSTATOMEGALY
     Dosage: ONE CAPSULE IN A DAY
     Route: 048
     Dates: start: 201803, end: 20180810
  2. LISINOPRIL. [Concomitant]
     Active Substance: LISINOPRIL
     Indication: BLOOD PRESSURE MEASUREMENT
     Dosage: 220 MG, QD
     Route: 048
  3. ECOTRIN [Concomitant]
     Active Substance: ASPIRIN
     Indication: PROPHYLAXIS
     Dosage: 325 MG, QD
     Route: 048
  4. AFRIN [Concomitant]
     Active Substance: OXYMETAZOLINE
     Indication: NASAL SEPTUM DEVIATION
     Dosage: 2 SPRAY IN A DAY
     Route: 065

REACTIONS (2)
  - Chills [Recovered/Resolved]
  - Tremor [Recovered/Resolved]

NARRATIVE: CASE EVENT DATE: 201806
